FAERS Safety Report 4635079-5 (Version None)
Quarter: 2005Q2

REPORT INFORMATION
  Report Type: 
  Country: None (occurrence: None)
  Receive Date: 20050414
  Receipt Date: 20050126
  Transmission Date: 20051028
  Serious: Yes (Death)
  Sender: FDA-Public Use
  Company Number: US-KINGPHARMUSA00001-K200500134

PATIENT
  Sex: Male

DRUGS (2)
  1. ALTACE [Suspect]
     Indication: HYPERTENSION
     Dosage: 5 MG, QD
     Route: 048
     Dates: start: 19970101, end: 20050309
  2. DOGMATIL [Concomitant]
     Dates: end: 20050309

REACTIONS (4)
  - BILE DUCT CANCER [None]
  - BILIARY CANCER METASTATIC [None]
  - HEPATIC NECROSIS [None]
  - JAUNDICE CHOLESTATIC [None]
